FAERS Safety Report 8580344-2 (Version None)
Quarter: 2012Q2

REPORT INFORMATION
  Report Type: 
  Country: None (occurrence: None)
  Receive Date: 20120423
  Receipt Date: 20100908
  Transmission Date: 20120825
  Serious: Yes (Other)
  Sender: FDA-Public Use
  Company Number: PHHY2010US22886

PATIENT
  Age: 60 Year
  Sex: Male

DRUGS (6)
  1. ATENOLOL [Suspect]
     Indication: BLOOD PRESSURE
  2. ANTIBIOTICS (NO INGREDIENTS/SUBSTANCES) [Concomitant]
  3. TRIHEXYPHENIDYL HCL [Suspect]
  4. SINEMET [Suspect]
  5. CARBIDOPA [Suspect]
  6. EXJADE [Suspect]
     Dosage: 1500 MG, QD, ORAL, 500 MG, QID, ORAL, 500 MG, TID, ORAL
     Route: 048

REACTIONS (8)
  - FATIGUE [None]
  - LIVER FUNCTION TEST ABNORMAL [None]
  - TOOTH EXTRACTION [None]
  - DIARRHOEA [None]
  - DRY MOUTH [None]
  - HEPATIC ENZYME INCREASED [None]
  - RENAL DISORDER [None]
  - PHARYNGITIS [None]
